FAERS Safety Report 9356257 (Version 4)
Quarter: 2013Q3

REPORT INFORMATION
  Report Type: Spontaneous
  Country: AT (occurrence: AT)
  Receive Date: 20130619
  Receipt Date: 20130723
  Transmission Date: 20140515
  Serious: Yes (Death)
  Sender: FDA-Public Use
  Company Number: AT-VERTEX PHARMACEUTICALS INC-2013-007231

PATIENT
  Sex: Female

DRUGS (16)
  1. INCIVO [Suspect]
     Indication: HEPATITIS C
     Route: 065
     Dates: start: 20130312, end: 20130614
  2. COPEGUS [Suspect]
     Indication: HEPATITIS C
     Dosage: DOSAGE FORM: UNSPECIFIED
     Route: 065
     Dates: start: 20130312, end: 20130614
  3. PEGASYS [Suspect]
     Indication: HEPATITIS C
     Dosage: DOSAGE FORM: UNSPECIFIED
     Route: 065
     Dates: start: 20130312, end: 20130614
  4. LANITOP [Concomitant]
  5. CONVULEXETTE [Concomitant]
  6. THYREX [Concomitant]
  7. PANTOLOC [Concomitant]
  8. LASILACTON [Concomitant]
     Dosage: 20/100 MG
  9. LISINOPRIL [Concomitant]
  10. DILATREND [Concomitant]
  11. ABILIFY [Concomitant]
  12. SEROQUEL XR [Concomitant]
  13. LASIX [Concomitant]
  14. DIAMICRON MR [Concomitant]
  15. NOVOMIX 30 [Concomitant]
  16. ALLOSTAD [Concomitant]
     Dosage: ^NO SIGNIFICANT CON-MED^

REACTIONS (1)
  - Cardiac failure [Fatal]
